FAERS Safety Report 8889403 (Version 1)
Quarter: 2012Q4

REPORT INFORMATION
  Report Type: Spontaneous
  Country: US (occurrence: None)
  Receive Date: 20121102
  Receipt Date: 20121102
  Transmission Date: 20130627
  Serious: Yes (Life-Threatening)
  Sender: FDA-Public Use
  Company Number: None

PATIENT
  Age: 71 Year
  Sex: Female
  Weight: 121 kg

DRUGS (17)
  1. XARELTO 20 MG JANSSEN [Suspect]
     Indication: ATRIAL FIBRILLATION
     Route: 048
     Dates: start: 20121025, end: 20121031
  2. IRON [Concomitant]
  3. OSTEO-BIFLEX [Concomitant]
  4. MAGNESIUM CHLORIDE [Concomitant]
  5. CALCIUM CILTRATE [Concomitant]
  6. CYANOCOBALMIN [Concomitant]
  7. FUROSEMIDE [Concomitant]
  8. LISINOPRIL [Concomitant]
  9. HCTZ [Concomitant]
  10. UBIQUINONES [Concomitant]
  11. ASPIRIN [Concomitant]
  12. AMIODARONE [Concomitant]
  13. EXENTIDE [Concomitant]
  14. POTASSIUM CHLORIDE [Concomitant]
  15. FLEXERIL [Concomitant]
  16. ULTRAM [Concomitant]
  17. NEXIUM [Concomitant]

REACTIONS (3)
  - Dizziness [None]
  - Haematochezia [None]
  - Haemoglobin decreased [None]
